FAERS Safety Report 16047953 (Version 2)
Quarter: 2019Q1

REPORT INFORMATION
  Report Type: Spontaneous
  Country: PL (occurrence: PL)
  Receive Date: 20190307
  Receipt Date: 20190314
  Transmission Date: 20190418
  Serious: No
  Sender: FDA-Public Use
  Company Number: PL-009507513-1902POL011444

PATIENT
  Age: 69 Year
  Sex: Male

DRUGS (7)
  1. EZETIMIBE. [Suspect]
     Active Substance: EZETIMIBE
     Indication: DYSLIPIDAEMIA
     Dosage: 10 MILLIGRAM, QD
     Route: 048
  2. TELMISARTAN. [Concomitant]
     Active Substance: TELMISARTAN
     Dosage: 40 MILLIGRAM, QD
  3. ASPIRIN. [Concomitant]
     Active Substance: ASPIRIN
     Dosage: 75 MILLIGRAM, QD
  4. ATORVASTATIN [Suspect]
     Active Substance: ATORVASTATIN
     Dosage: 40 MILLIGRAM, QD;
     Route: 065
  5. TORSEMIDE. [Concomitant]
     Active Substance: TORSEMIDE
     Dosage: 10 MILLIGRAM, QD
  6. ATORVASTATIN [Suspect]
     Active Substance: ATORVASTATIN
     Indication: DYSLIPIDAEMIA
     Dosage: 80 MILLIGRAM, QD
     Route: 065
  7. METOPROLOL. [Concomitant]
     Active Substance: METOPROLOL
     Dosage: 47.5 MILLIGRAM, QD
     Route: 065

REACTIONS (1)
  - Myalgia [Unknown]
